FAERS Safety Report 10095437 (Version 1)
Quarter: 2014Q2

REPORT INFORMATION
  Report Type: Spontaneous
  Country: US (occurrence: None)
  Receive Date: 20140418
  Receipt Date: 20140418
  Transmission Date: 20141212
  Serious: Yes (Hospitalization)
  Sender: FDA-Public Use
  Company Number: TTX201400041

PATIENT
  Age: 24 Year
  Sex: Male

DRUGS (1)
  1. MARQIBO [Suspect]
     Indication: ACUTE LYMPHOCYTIC LEUKAEMIA
     Route: 042
     Dates: start: 20140310

REACTIONS (7)
  - Rhinovirus infection [None]
  - Pneumonia [None]
  - Febrile neutropenia [None]
  - Groin pain [None]
  - Lymphadenopathy [None]
  - Enterococcal infection [None]
  - Disease recurrence [None]
